FAERS Safety Report 8604338-3 (Version None)
Quarter: 2012Q3

REPORT INFORMATION
  Report Type: 
  Country: None (occurrence: None)
  Receive Date: 20120808
  Receipt Date: 20120808
  Transmission Date: 20120928
  Serious: Yes (Death)
  Sender: FDA-Public Use
  Company Number: None

PATIENT
  Sex: Male
  Weight: 7.7565 kg

DRUGS (1)
  1. BROMPHENIRAMINE [Suspect]
     Indication: UPPER RESPIRATORY TRACT INFECTION
     Dosage: 0.25 ML TID ORALLY ONE DOSE GIVEN
     Route: 048

REACTIONS (1)
  - SUDDEN DEATH [None]
